FAERS Safety Report 5355511-1 (Version None)
Quarter: 2007Q2

REPORT INFORMATION
  Report Type: 
  Country: None (occurrence: None)
  Receive Date: 20070613
  Receipt Date: 20070604
  Transmission Date: 20071010
  Serious: Yes (Hospitalization, Other)
  Sender: FDA-Public Use
  Company Number: DE-AVENTIS-200714945GDDC

PATIENT
  Age: 42 Year
  Sex: Female
  Weight: 38.4 kg

DRUGS (2)
  1. HYDROCORTISONE [Suspect]
     Route: 042
  2. HYDROCORTISONE [Suspect]
     Dosage: DOSE QUANTITY: 10; DOSE UNIT: MILLIGRAM PER HOUR
     Route: 042

REACTIONS (3)
  - CARDIOGENIC SHOCK [None]
  - CARDIOMYOPATHY [None]
  - PULMONARY OEDEMA [None]
